FAERS Safety Report 7793827-X (Version None)
Quarter: 2011Q4

REPORT INFORMATION
  Report Type: 
  Country: None (occurrence: None)
  Receive Date: 20111003
  Receipt Date: 20110927
  Transmission Date: 20120403
  Serious: Yes (Life-Threatening, Hospitalization)
  Sender: FDA-Public Use
  Company Number: US-BRISTOL-MYERS SQUIBB COMPANY-16106726

PATIENT
  Age: 79 Year
  Sex: Female
  Weight: 64 kg

DRUGS (13)
  1. FAMOTIDINE [Concomitant]
     Dates: start: 20110614
  2. ZOLPIDEM [Concomitant]
  3. PEMETREXED DISODIUM [Suspect]
     Indication: NON-SMALL CELL LUNG CANCER
     Dosage: LAST DOSE:12SEP2011
     Route: 042
     Dates: start: 20110801, end: 20110919
  4. VITAMIN B-12 [Concomitant]
     Indication: SUPPLEMENTATION THERAPY
     Dates: start: 20110721
  5. EMEND [Concomitant]
     Dates: start: 20110801
  6. XANAX [Concomitant]
  7. NORVASC [Concomitant]
     Dates: start: 20071221
  8. ACETYLSALICYLIC ACID SRT [Concomitant]
     Dates: start: 20080121
  9. HYZAAR [Concomitant]
     Dates: start: 20071221
  10. ALOXI [Concomitant]
     Dates: start: 20110801
  11. BEVACIZUMAB [Suspect]
     Indication: NON-SMALL CELL LUNG CANCER
     Dosage: LAST DOSE:12SEP2011
     Route: 042
     Dates: start: 20110801, end: 20110919
  12. CARBOPLATIN [Suspect]
     Indication: NON-SMALL CELL LUNG CANCER
     Dosage: 1DF=6AUC LAST DOSE:12SEP2011
     Route: 042
     Dates: start: 20110801, end: 20110919
  13. FOLIC ACID [Concomitant]
     Indication: SUPPLEMENTATION THERAPY
     Dates: start: 20110621

REACTIONS (2)
  - FISTULA [None]
  - DYSPNOEA [None]
